FAERS Safety Report 15982372 (Version 2)
Quarter: 2019Q3

REPORT INFORMATION
  Report Type: Spontaneous
  Country: JP (occurrence: JP)
  Receive Date: 20190219
  Receipt Date: 20190711
  Transmission Date: 20191004
  Serious: Yes (Death, Other)
  Sender: FDA-Public Use
  Company Number: JP-009507513-1902JPN001343J

PATIENT
  Age: 45 Year
  Sex: Female
  Weight: 50 kg

DRUGS (4)
  1. PREVYMIS [Suspect]
     Active Substance: LETERMOVIR
     Indication: ANTIVIRAL PROPHYLAXIS
     Dosage: 480 MILLIGRAM, QD
     Route: 041
     Dates: start: 201811, end: 201902
  2. PARIET [Concomitant]
     Active Substance: RABEPRAZOLE SODIUM
     Indication: PROPHYLAXIS AGAINST GASTROINTESTINAL ULCER
     Dosage: 2 DOSAGE FORM, QD
     Route: 048
     Dates: start: 20181109, end: 20190111
  3. DAIPHEN [Concomitant]
     Active Substance: SULFAMETHOXAZOLE\TRIMETHOPRIM
     Indication: PROPHYLAXIS
     Dosage: 1 DOSAGE FORM, QD
     Route: 048
     Dates: start: 20181102, end: 20190111
  4. ACICLOVIR [Concomitant]
     Active Substance: ACYCLOVIR
     Indication: PROPHYLAXIS
     Dosage: 5 DOSAGE FORM, TID
     Route: 048
     Dates: start: 20181109, end: 20190111

REACTIONS (3)
  - Acute graft versus host disease [Unknown]
  - Thrombotic microangiopathy [Unknown]
  - Multiple organ dysfunction syndrome [Fatal]

NARRATIVE: CASE EVENT DATE: 20181228
